FAERS Safety Report 10214133 (Version 2)
Quarter: 2014Q2

REPORT INFORMATION
  Report Type: Spontaneous
  Country: FR (occurrence: FR)
  Receive Date: 20140603
  Receipt Date: 20140603
  Transmission Date: 20141212
  Serious: Yes (Hospitalization, Disabling, Other)
  Sender: FDA-Public Use
  Company Number: FR-PFIZER INC-2014132789

PATIENT
  Age: 35 Year
  Sex: Female

DRUGS (10)
  1. MICROVAL [Suspect]
     Dosage: UNK
     Route: 048
     Dates: start: 20130519, end: 20130716
  2. INIPOMP [Suspect]
     Dosage: 20 MG, 1X/DAY
     Route: 048
     Dates: start: 20110105, end: 20130716
  3. LARGACTIL [Suspect]
     Indication: PSYCHOTIC DISORDER
     Dosage: 125 GTT, 1X/DAY
     Route: 048
     Dates: start: 20130531, end: 20130716
  4. NOZINAN [Suspect]
     Indication: PSYCHOTIC DISORDER
     Dosage: 500 GTT, 1X/DAY
     Route: 048
     Dates: start: 20110930, end: 20130716
  5. LEPTICUR [Suspect]
     Indication: PSYCHOTIC DISORDER
     Dosage: 20 MG, 1X/DAY
     Route: 048
     Dates: start: 20110105, end: 20130716
  6. TRANXENE [Suspect]
     Dosage: 60 MG, 1X/DAY
     Route: 048
     Dates: start: 20110105, end: 20130716
  7. NOCTAMID [Suspect]
     Dosage: 1 MG, 1X/DAY
     Route: 048
     Dates: start: 20130215, end: 20130716
  8. FOZITEC [Suspect]
     Dosage: 10 MG, 1X/DAY
     Route: 048
     Dates: start: 20110105, end: 20130716
  9. DUPHALAC [Suspect]
     Dosage: 3 DF, DAILY
     Route: 048
     Dates: start: 20120801, end: 20130716
  10. LOXAPAC [Concomitant]
     Dosage: UNK

REACTIONS (1)
  - Colitis ischaemic [Recovered/Resolved with Sequelae]
